FAERS Safety Report 7457803-9 (Version None)
Quarter: 2011Q2

REPORT INFORMATION
  Report Type: 
  Country: None (occurrence: None)
  Receive Date: 20110504
  Receipt Date: 20110421
  Transmission Date: 20111010
  Serious: Yes (Hospitalization)
  Sender: FDA-Public Use
  Company Number: PHHY2011US34131

PATIENT
  Sex: Female

DRUGS (1)
  1. NEORAL [Suspect]
     Dosage: UNK

REACTIONS (1)
  - PULMONARY OEDEMA [None]
